FAERS Safety Report 6574218-6 (Version None)
Quarter: 2010Q1

REPORT INFORMATION
  Report Type: 
  Country: None (occurrence: None)
  Receive Date: 20100208
  Receipt Date: 20100203
  Transmission Date: 20100710
  Serious: Yes (Other)
  Sender: FDA-Public Use
  Company Number: CHPA2009US23083

PATIENT
  Age: 48 Year
  Sex: Female
  Weight: 54.422 kg

DRUGS (1)
  1. VAGISTAT-1 (NCH) [Suspect]
     Indication: VULVOVAGINAL MYCOTIC INFECTION
     Dosage: 300 MG, ONCE/SINGLE
     Route: 067
     Dates: start: 20091203, end: 20091203

REACTIONS (3)
  - FOREIGN BODY [None]
  - NO ADVERSE EVENT [None]
  - WRONG TECHNIQUE IN DRUG USAGE PROCESS [None]
